FAERS Safety Report 15785874 (Version 1)
Quarter: 2019Q1

REPORT INFORMATION
  Report Type: Report from Study
  Country: KR (occurrence: KR)
  Receive Date: 20190103
  Receipt Date: 20190103
  Transmission Date: 20190417
  Serious: Yes (Death)
  Sender: FDA-Public Use
  Company Number: KR-PFIZER INC-2019000071

PATIENT
  Age: 6 Month
  Sex: Male

DRUGS (9)
  1. CLINDAMYCIN PHOSPHATE. [Suspect]
     Active Substance: CLINDAMYCIN PHOSPHATE
     Indication: PNEUMOCYSTIS JIROVECII PNEUMONIA
     Dosage: 60 MG, 4X/DAY
  2. FOSCARNET [Suspect]
     Active Substance: FOSCARNET
     Indication: CYTOMEGALOVIRUS INFECTION
     Dosage: 90 MG/KG, 2X/DAY (ON DAY 9)
  3. ATOVAQUONE. [Suspect]
     Active Substance: ATOVAQUONE
     Indication: PNEUMOCYSTIS JIROVECII PNEUMONIA
     Dosage: 150 MG, 1X/DAY (ON DAY 26)
  4. PROGUANIL [Suspect]
     Active Substance: PROGUANIL
     Indication: PNEUMOCYSTIS JIROVECII PNEUMONIA
     Dosage: 60 MG, 2X/DAY
  5. TRIMETHOPRIM SULFAMETHOXAZOLE [Suspect]
     Active Substance: SULFAMETHOXAZOLE\TRIMETHOPRIM
     Indication: PNEUMOCYSTIS JIROVECII PNEUMONIA
     Dosage: UNK, 4X/DAY (40 MG 4 TIMES TRIMETHOPRIM  COMPONENT)
  6. CEFOTAXIME [Suspect]
     Active Substance: CEFOTAXIME SODIUM
     Indication: CYTOMEGALOVIRUS INFECTION
     Dosage: 200 MG, 4X/DAY
  7. CASPOFUNGIN [Suspect]
     Active Substance: CASPOFUNGIN
     Indication: PNEUMOCYSTIS JIROVECII PNEUMONIA
     Dosage: 70 MG, UNK
  8. CASPOFUNGIN [Suspect]
     Active Substance: CASPOFUNGIN
     Dosage: 50 MG, 1X/DAY
  9. PRIMAQUINE [Suspect]
     Active Substance: PRIMAQUINE PHOSPHATE
     Indication: PNEUMOCYSTIS JIROVECII PNEUMONIA
     Dosage: 5 MG, DAILY

REACTIONS (1)
  - Drug ineffective [Fatal]
